FAERS Safety Report 12423714 (Version 1)
Quarter: 2016Q2

REPORT INFORMATION
  Report Type: Spontaneous
  Country: US (occurrence: None)
  Receive Date: 20160531
  Receipt Date: 20160531
  Transmission Date: 20160815
  Serious: Yes (Life-Threatening, Other)
  Sender: FDA-Public Use
  Company Number: None

PATIENT
  Age: 67 Year
  Sex: Female
  Weight: 54.43 kg

DRUGS (12)
  1. LIFE PLUS [Concomitant]
  2. MULTI-VITAMINS (CALCIUM PANTOTHENATE, FOLIC ACID, VITAMINS NOS) [Concomitant]
     Active Substance: VITAMINS
  3. HYLAND^S SLEEP [Concomitant]
  4. CLARITIN [Concomitant]
     Active Substance: LORATADINE
  5. MULTI-MINERAL [Concomitant]
  6. CALCIUM [Concomitant]
     Active Substance: CALCIUM
  7. FLUOXETINE [Concomitant]
     Active Substance: FLUOXETINE HYDROCHLORIDE
  8. LISINOPRIL. [Concomitant]
     Active Substance: LISINOPRIL
  9. MELATONIN [Concomitant]
     Active Substance: MELATONIN
  10. LIDOCAINE-EPINEPHRINE SYRINGE [Suspect]
     Active Substance: EPINEPHRINE\LIDOCAINE
  11. LEVOTHYROXINE. [Concomitant]
     Active Substance: LEVOTHYROXINE
  12. CALMS FORTE 4 KIDS [Concomitant]
     Active Substance: HOMEOPATHICS

REACTIONS (5)
  - Dyspnoea [None]
  - Haemorrhage [None]
  - Injection site pain [None]
  - Loss of consciousness [None]
  - Hyperhidrosis [None]

NARRATIVE: CASE EVENT DATE: 20160525
